FAERS Safety Report 4979017-4 (Version None)
Quarter: 2006Q2

REPORT INFORMATION
  Report Type: 
  Country: None (occurrence: None)
  Receive Date: 20060421
  Receipt Date: 20060410
  Transmission Date: 20061013
  Serious: Yes (Disabling)
  Sender: FDA-Public Use
  Company Number: EG-ABBOTT-06P-048-0330300-00

PATIENT
  Age: 11 Year
  Sex: Male

DRUGS (5)
  1. DEPAKENE [Suspect]
     Indication: CONVULSION
     Route: 048
  2. DEPAKENE [Suspect]
  3. PHENYTOIN SODIUM [Concomitant]
     Indication: CONVULSION
     Route: 042
  4. TOPIRAMATE [Concomitant]
     Indication: CONVULSION
     Route: 048
  5. MIDAZOLAM HCL [Concomitant]
     Indication: CONVULSION
     Route: 042

REACTIONS (6)
  - AUTONOMIC NERVOUS SYSTEM IMBALANCE [None]
  - DEPRESSED LEVEL OF CONSCIOUSNESS [None]
  - DRUG INEFFECTIVE [None]
  - FLUSHING [None]
  - MYDRIASIS [None]
  - TACHYCARDIA [None]
